FAERS Safety Report 23024031 (Version 1)
Quarter: 2023Q4

REPORT INFORMATION
  Report Type: Spontaneous
  Country: US (occurrence: US)
  Receive Date: 20231003
  Receipt Date: 20231003
  Transmission Date: 20240110
  Serious: No
  Sender: FDA-Public Use
  Company Number: US-drreddys-LIT/USA/23/0176041

PATIENT
  Age: 76 Year
  Sex: Female

DRUGS (2)
  1. ABIRATERONE ACETATE [Suspect]
     Active Substance: ABIRATERONE ACETATE
     Indication: Adenocarcinoma metastatic
  2. PREDNISONE [Suspect]
     Active Substance: PREDNISONE
     Indication: Adenocarcinoma metastatic

REACTIONS (3)
  - Fatigue [Unknown]
  - Oedema peripheral [Unknown]
  - Off label use [Unknown]
